FAERS Safety Report 13294312 (Version 2)
Quarter: 2017Q1

REPORT INFORMATION
  Report Type: Spontaneous
  Country: None (occurrence: US)
  Receive Date: 20170303
  Receipt Date: 20170316
  Transmission Date: 20170428
  Serious: Yes (Other)
  Sender: FDA-Public Use
  Company Number: US-SAOL THERAPEUTICS-2017SAO00394

PATIENT
  Age: 5 Year
  Sex: Male

DRUGS (1)
  1. GABLOFEN [Suspect]
     Active Substance: BACLOFEN
     Route: 037

REACTIONS (3)
  - Complication associated with device [Unknown]
  - Medical device site injury [Unknown]
  - Fall [Unknown]

NARRATIVE: CASE EVENT DATE: 201702
